FAERS Safety Report 7910541-8 (Version None)
Quarter: 2011Q4

REPORT INFORMATION
  Report Type: 
  Country: None (occurrence: None)
  Receive Date: 20111111
  Receipt Date: 20111028
  Transmission Date: 20120403
  Serious: Yes (Other)
  Sender: FDA-Public Use
  Company Number: PHHY2011AU96176

PATIENT
  Age: 60 Year
  Sex: Female

DRUGS (4)
  1. MYCOPHENOLATE MOFETIL [Suspect]
  2. PREDNISOLONE [Concomitant]
     Indication: RENAL TRANSPLANT
  3. CYCLOSPORINE [Suspect]
     Indication: RENAL TRANSPLANT
  4. SALINE [Concomitant]
     Route: 042

REACTIONS (12)
  - AORTIC STENOSIS [None]
  - CHEST PAIN [None]
  - CHRONIC ALLOGRAFT NEPHROPATHY [None]
  - KIDNEY TRANSPLANT REJECTION [None]
  - BLOOD CREATININE INCREASED [None]
  - DYSPNOEA [None]
  - OEDEMA [None]
  - ORTHOPNOEA [None]
  - DYSPNOEA PAROXYSMAL NOCTURNAL [None]
  - LEFT VENTRICULAR HYPERTROPHY [None]
  - INTERMITTENT CLAUDICATION [None]
  - HYPERTENSION [None]
